FAERS Safety Report 10148052 (Version 2)
Quarter: 2014Q2

REPORT INFORMATION
  Report Type: Spontaneous
  Country: US (occurrence: US)
  Receive Date: 20140501
  Receipt Date: 20140602
  Transmission Date: 20141212
  Serious: No
  Sender: FDA-Public Use
  Company Number: US-AMGEN-USASP2014026835

PATIENT
  Age: 45 Year
  Sex: Female
  Weight: 55.87 kg

DRUGS (3)
  1. ENBREL [Suspect]
     Indication: PSORIASIS
     Dosage: 50 MG, QWK
     Route: 058
     Dates: start: 20110801, end: 20131030
  2. REMICADE [Concomitant]
     Dosage: UNK
  3. METHOTREXATE [Concomitant]
     Indication: PSORIASIS
     Dosage: 5 MG, QWK
     Route: 048
     Dates: start: 20120908

REACTIONS (3)
  - Therapeutic response decreased [Recovered/Resolved]
  - Fear of injection [Unknown]
  - Injection site pain [Recovered/Resolved]
